FAERS Safety Report 7798315-2 (Version None)
Quarter: 2011Q4

REPORT INFORMATION
  Report Type: 
  Country: None (occurrence: None)
  Receive Date: 20111005
  Receipt Date: 20110922
  Transmission Date: 20120403
  Serious: Yes (Other)
  Sender: FDA-Public Use
  Company Number: JP-MYLANLABS-2011S1020299

PATIENT
  Age: 18 Year
  Sex: Male

DRUGS (4)
  1. LANSOPRAZOLE [Interacting]
     Dosage: 15 MG/DAY
     Route: 048
  2. TACROLIMUS [Suspect]
     Indication: PROPHYLAXIS AGAINST GRAFT VERSUS HOST DISEASE
     Dosage: 0.78 MG/DAY (BEFORE DOSAGE INCREASE ON D28)
     Route: 041
  3. VORICONAZOLE [Interacting]
     Dosage: 400 MG/DAY
     Route: 065
  4. LANSOPRAZOLE [Interacting]
     Dosage: 60 MG/DAY
     Route: 042

REACTIONS (3)
  - IMMUNOSUPPRESSANT DRUG LEVEL INCREASED [None]
  - GRAFT VERSUS HOST DISEASE [None]
  - DRUG INTERACTION [None]
